FAERS Safety Report 20985258 (Version 1)
Quarter: 2022Q2

REPORT INFORMATION
  Report Type: Spontaneous
  Country: CA (occurrence: CA)
  Receive Date: 20220621
  Receipt Date: 20220621
  Transmission Date: 20220721
  Serious: Yes (Hospitalization, Other)
  Sender: FDA-Public Use
  Company Number: CA-NOVARTISPH-NVSC2022CA140708

PATIENT
  Sex: Female

DRUGS (2)
  1. FINGOLIMOD [Suspect]
     Active Substance: FINGOLIMOD
     Indication: Relapsing-remitting multiple sclerosis
     Dosage: 0.5 MG, QD
     Route: 048
     Dates: start: 20200122
  2. PREDNISONE [Suspect]
     Active Substance: PREDNISONE
     Indication: Product used for unknown indication
     Dosage: 3  DAYS UNK
     Route: 065
     Dates: start: 20201016

REACTIONS (35)
  - Pneumonia aspiration [Not Recovered/Not Resolved]
  - Kidney infection [Not Recovered/Not Resolved]
  - Pyrexia [Not Recovered/Not Resolved]
  - Chills [Not Recovered/Not Resolved]
  - Tremor [Not Recovered/Not Resolved]
  - Vomiting [Not Recovered/Not Resolved]
  - Back pain [Not Recovered/Not Resolved]
  - Urine abnormality [Not Recovered/Not Resolved]
  - Multiple sclerosis relapse [Unknown]
  - Hypertension [Unknown]
  - Breast mass [Unknown]
  - Stress [Unknown]
  - Breast discomfort [Unknown]
  - Insomnia [Unknown]
  - Fine motor skill dysfunction [Unknown]
  - Respiratory rate increased [Unknown]
  - Infrequent bowel movements [Unknown]
  - Feeling of body temperature change [Unknown]
  - Coordination abnormal [Unknown]
  - Pain of skin [Unknown]
  - Cystitis [Unknown]
  - Dysuria [Unknown]
  - Gastrooesophageal reflux disease [Unknown]
  - Fall [Unknown]
  - Decreased appetite [Unknown]
  - Ligament sprain [Unknown]
  - Vision blurred [Unknown]
  - Dizziness [Unknown]
  - Confusional state [Unknown]
  - Hypoaesthesia [Unknown]
  - Hepatic enzyme increased [Unknown]
  - Chest discomfort [Unknown]
  - Abdominal pain [Unknown]
  - Fatigue [Unknown]
  - Product dose omission issue [Unknown]
